FAERS Safety Report 21541288 (Version 1)
Quarter: 2022Q4

REPORT INFORMATION
  Report Type: Spontaneous
  Country: US (occurrence: US)
  Receive Date: 20221102
  Receipt Date: 20221102
  Transmission Date: 20230113
  Serious: Yes (Death, Hospitalization, Other)
  Sender: FDA-Public Use
  Company Number: US-SA-SAC20221101002292

PATIENT
  Age: 72 Year
  Sex: Male

DRUGS (6)
  1. CAMPATH [Suspect]
     Active Substance: ALEMTUZUMAB
     Indication: T-cell prolymphocytic leukaemia
     Dosage: 30 MG (EVERY MONDAY, WEDNESDAY, FRIDAY)
     Route: 042
     Dates: start: 20220909, end: 20221021
  2. CYTARABINE [Concomitant]
     Active Substance: CYTARABINE
     Dosage: UNK
  3. METHOTREXATE [Concomitant]
     Active Substance: METHOTREXATE
     Dosage: UNK
  4. MICAFUNGIN [Concomitant]
     Active Substance: MICAFUNGIN
     Indication: Fungal infection
     Dosage: UNK
     Route: 042
     Dates: start: 20220922, end: 20221027
  5. HYDROCORTISONE [Concomitant]
     Active Substance: HYDROCORTISONE
     Dosage: UNK
  6. TAMSULOSIN [Concomitant]
     Active Substance: TAMSULOSIN
     Dosage: UNK

REACTIONS (3)
  - Haematuria [Fatal]
  - Glomerulonephropathy [Fatal]
  - Proteinuria [Fatal]

NARRATIVE: CASE EVENT DATE: 20221023
